FAERS Safety Report 13947187 (Version 20)
Quarter: 2019Q2

REPORT INFORMATION
  Report Type: Spontaneous
  Country: JP (occurrence: JP)
  Receive Date: 20170907
  Receipt Date: 20190630
  Transmission Date: 20190711
  Serious: Yes (Hospitalization, Other)
  Sender: FDA-Public Use
  Company Number: JP-UNITED THERAPEUTICS-UNT-2016-012695

PATIENT
  Age: 35 Year
  Sex: Female
  Weight: 72.6 kg

DRUGS (26)
  1. URSO [Concomitant]
     Active Substance: URSODIOL
     Indication: PRODUCT USED FOR UNKNOWN INDICATION
     Dosage: UNK
     Route: 048
     Dates: start: 20170927
  2. REMODULIN [Suspect]
     Active Substance: TREPROSTINIL
     Dosage: 0.150 ?G/KG, CONTINUING
     Route: 058
     Dates: start: 20171211, end: 20180109
  3. OPSUMIT [Concomitant]
     Active Substance: MACITENTAN
     Indication: PULMONARY ARTERIAL HYPERTENSION
     Dosage: UNK
     Route: 048
     Dates: start: 201606
  4. OPSUMIT [Concomitant]
     Active Substance: MACITENTAN
     Dosage: 10 MG, UNK
     Route: 048
     Dates: start: 20160728
  5. CARELOAD LA [Concomitant]
     Active Substance: BERAPROST SODIUM
     Indication: PULMONARY ARTERIAL HYPERTENSION
     Dosage: UNK
     Route: 048
     Dates: start: 201607
  6. NEXIUM [Concomitant]
     Active Substance: ESOMEPRAZOLE MAGNESIUM
     Indication: PRODUCT USE IN UNAPPROVED INDICATION
     Dosage: UNK
     Route: 048
     Dates: end: 20171101
  7. PLAVIX [Concomitant]
     Active Substance: CLOPIDOGREL BISULFATE
     Indication: PRODUCT USE IN UNAPPROVED INDICATION
     Dosage: UNK
     Route: 048
     Dates: end: 20170521
  8. FAMOTIDINE. [Concomitant]
     Active Substance: FAMOTIDINE
     Indication: PRODUCT USED FOR UNKNOWN INDICATION
     Dosage: UNK
     Route: 048
     Dates: start: 20171101, end: 20180126
  9. REMODULIN [Suspect]
     Active Substance: TREPROSTINIL
     Dosage: 0.102 ?G/KG, CONTINUING
     Route: 058
     Dates: start: 2017
  10. REMODULIN [Suspect]
     Active Substance: TREPROSTINIL
     Dosage: 0.010 ?G/KG, CONTINUING
     Route: 058
  11. REMODULIN [Suspect]
     Active Substance: TREPROSTINIL
     Dosage: 0.152 ?G/KG, CONTINUING
     Route: 058
  12. REMODULIN [Suspect]
     Active Substance: TREPROSTINIL
     Dosage: 0.076 ?G/KG, CONTINUING
     Route: 058
     Dates: start: 20180823
  13. FERROUS SODIUM CITRATE [Concomitant]
     Active Substance: SODIUM FERROUS CITRATE
     Indication: PRODUCT USED FOR UNKNOWN INDICATION
     Dosage: UNK
     Route: 048
     Dates: start: 20170911
  14. BENZBROMARONE [Concomitant]
     Active Substance: BENZBROMARONE
     Indication: PRODUCT USE IN UNAPPROVED INDICATION
     Dosage: UNK
     Route: 048
  15. REMODULIN [Suspect]
     Active Substance: TREPROSTINIL
     Dosage: 0.004 ?G/KG, CONTINUING
     Route: 058
     Dates: start: 20180110, end: 201801
  16. LASIX [Concomitant]
     Active Substance: FUROSEMIDE
     Indication: PULMONARY ARTERIAL HYPERTENSION
     Dosage: UNK
     Route: 048
  17. ALDACTONE A [Concomitant]
     Active Substance: SPIRONOLACTONE
     Indication: PULMONARY ARTERIAL HYPERTENSION
     Dosage: UNK
     Route: 048
  18. URINORM [Concomitant]
     Active Substance: BENZBROMARONE
     Indication: PRODUCT USE IN UNAPPROVED INDICATION
     Dosage: UNK
     Route: 048
  19. XARELTO [Concomitant]
     Active Substance: RIVAROXABAN
     Indication: PULMONARY ARTERIAL HYPERTENSION
     Dosage: UNK
     Route: 048
     Dates: start: 20170914
  20. REMODULIN [Suspect]
     Active Substance: TREPROSTINIL
     Indication: PULMONARY ARTERIAL HYPERTENSION
     Dosage: 0.001 ?G/KG, CONTINUING
     Route: 058
     Dates: start: 20160728, end: 201710
  21. REMODULIN [Suspect]
     Active Substance: TREPROSTINIL
     Dosage: 0.165 ?G/KG, CONTINUING
     Route: 058
  22. WARFARIN [Concomitant]
     Active Substance: WARFARIN
     Indication: PRODUCT USE IN UNAPPROVED INDICATION
     Dosage: UNK
     Route: 048
     Dates: end: 20170914
  23. AZUNOL [Concomitant]
     Indication: PRODUCT USED FOR UNKNOWN INDICATION
     Dosage: UNK
     Route: 061
     Dates: start: 20171103, end: 20180107
  24. REMODULIN [Suspect]
     Active Substance: TREPROSTINIL
     Dosage: 0.060 ?G/KG, CONTINUING
     Route: 058
  25. ADEMPAS [Concomitant]
     Active Substance: RIOCIGUAT
     Indication: PULMONARY ARTERIAL HYPERTENSION
     Dosage: UNK
     Route: 048
     Dates: start: 201606
  26. ADEMPAS [Concomitant]
     Active Substance: RIOCIGUAT
     Dosage: 7.5 MG, UNK
     Route: 048
     Dates: start: 20160728

REACTIONS (21)
  - Infusion site erosion [Unknown]
  - White blood cell count decreased [Recovering/Resolving]
  - Needle issue [Unknown]
  - Vomiting [Recovering/Resolving]
  - Pseudomembranous colitis [Recovering/Resolving]
  - Pyrexia [Unknown]
  - Hypopituitarism [Recovering/Resolving]
  - Helicobacter gastritis [Unknown]
  - Infusion site erythema [Recovered/Resolved]
  - Influenza [Unknown]
  - Infusion site infection [Unknown]
  - Device related infection [Recovering/Resolving]
  - Diarrhoea [Recovering/Resolving]
  - Infusion site swelling [Unknown]
  - Infusion site induration [Unknown]
  - Infusion site pain [Recovered/Resolved]
  - Weight increased [Unknown]
  - Platelet count decreased [Recovering/Resolving]
  - Nausea [Recovering/Resolving]
  - Infusion site pruritus [Recovered/Resolved]
  - Dermatitis allergic [Unknown]

NARRATIVE: CASE EVENT DATE: 201608
